FAERS Safety Report 18527941 (Version 2)
Quarter: 2021Q2

REPORT INFORMATION
  Report Type: Report from Study
  Country: US (occurrence: US)
  Receive Date: 20201120
  Receipt Date: 20210416
  Transmission Date: 20210717
  Serious: No
  Sender: FDA-Public Use
  Company Number: US-TAKEDA-2020TUS048294

PATIENT
  Sex: Female
  Weight: 63 kg

DRUGS (17)
  1. NORMAL SALINE [Concomitant]
     Active Substance: SODIUM CHLORIDE
  2. EPINEPHRINE. [Concomitant]
     Active Substance: EPINEPHRINE
  3. DEXTROSE. [Concomitant]
     Active Substance: DEXTROSE
  4. PROGESTERONE. [Concomitant]
     Active Substance: PROGESTERONE
  5. ESTRADIOL. [Concomitant]
     Active Substance: ESTRADIOL
  6. LIDOCAINE. [Concomitant]
     Active Substance: LIDOCAINE
  7. VITAMIN C [Concomitant]
     Active Substance: ASCORBIC ACID
  8. ALPHA LIPOIC ACID [Concomitant]
     Active Substance: .ALPHA.-LIPOIC ACID
  9. DIPHENHYDRAMINE. [Concomitant]
     Active Substance: DIPHENHYDRAMINE
  10. JANUVIA [Concomitant]
     Active Substance: SITAGLIPTIN PHOSPHATE
  11. PRENATAL [Concomitant]
     Active Substance: VITAMINS
  12. VITAMIN D [ERGOCALCIFEROL] [Concomitant]
     Active Substance: ERGOCALCIFEROL
  13. HUMAN NORMAL IMMUNOGLOBULIN; LIQUID [Suspect]
     Active Substance: HUMAN IMMUNOGLOBULIN G
     Indication: IMMUNOGLOBULINS INCREASED
     Dosage: 25 GRAM, EVERY 1?2 WEEKS
     Route: 042
     Dates: start: 20201026
  14. ACETAMINOPHEN. [Concomitant]
     Active Substance: ACETAMINOPHEN
  15. METANX [Concomitant]
     Active Substance: LEVOMEFOLATE CALCIUM\METHYLCOBALAMIN\PYRIDOXAL PHOSPHATE ANHYDROUS
  16. PREDNISONE. [Concomitant]
     Active Substance: PREDNISONE
  17. HYDROXYCHLOROQUINE [Concomitant]
     Active Substance: HYDROXYCHLOROQUINE

REACTIONS (2)
  - Headache [Unknown]
  - Exposure during pregnancy [Unknown]
